FAERS Safety Report 13722379 (Version 6)
Quarter: 2017Q3

REPORT INFORMATION
  Report Type: Spontaneous
  Country: IN (occurrence: IN)
  Receive Date: 20170706
  Receipt Date: 20170906
  Transmission Date: 20171127
  Serious: Yes (Death, Hospitalization, Other)
  Sender: FDA-Public Use
  Company Number: IN-PFIZER INC-2017047623

PATIENT
  Age: 57 Year
  Sex: Female

DRUGS (2)
  1. PALBACE [Suspect]
     Active Substance: PALBOCICLIB
     Indication: BREAST CANCER METASTATIC
     Dosage: 125 MG, CYCLIC (ONCE A DAY)
     Route: 048
     Dates: start: 20170131
  2. LETROZOLE. [Concomitant]
     Active Substance: LETROZOLE
     Dosage: 2.5 MG, MONTHLY
     Route: 048
     Dates: start: 20170108

REACTIONS (14)
  - Platelet count decreased [Unknown]
  - Pruritus [Unknown]
  - Skin discolouration [Unknown]
  - Flatulence [Unknown]
  - Skin irritation [Unknown]
  - Constipation [Unknown]
  - Haemoglobin decreased [Unknown]
  - Eating disorder [Unknown]
  - Red blood cell count decreased [Unknown]
  - Pleural effusion [Unknown]
  - Abdominal distension [Unknown]
  - Haemorrhoids [Unknown]
  - Ascites [Unknown]
  - Neoplasm progression [Fatal]

NARRATIVE: CASE EVENT DATE: 20170226
